FAERS Safety Report 13058780 (Version 1)
Quarter: 2016Q4

REPORT INFORMATION
  Report Type: Report from Study
  Country: IT (occurrence: IT)
  Receive Date: 20161223
  Receipt Date: 20161223
  Transmission Date: 20170207
  Serious: Yes (Other)
  Sender: FDA-Public Use
  Company Number: IT-BRISTOL-MYERS SQUIBB COMPANY-BMS-2016-107738

PATIENT
  Age: 74 Year
  Sex: Female

DRUGS (1)
  1. NIVOLUMAB [Suspect]
     Active Substance: NIVOLUMAB
     Indication: RENAL CELL CARCINOMA
     Dosage: 3 MG/KG, Q2WK
     Route: 042

REACTIONS (7)
  - General physical health deterioration [Not Recovered/Not Resolved]
  - Pain in extremity [Unknown]
  - Cystitis [Unknown]
  - Weight decreased [Not Recovered/Not Resolved]
  - Asthenia [Unknown]
  - Gait disturbance [Unknown]
  - Decreased appetite [Not Recovered/Not Resolved]

NARRATIVE: CASE EVENT DATE: 20160603
